FAERS Safety Report 20847198 (Version 2)
Quarter: 2022Q2

REPORT INFORMATION
  Report Type: Report from Study
  Country: CZ (occurrence: CZ)
  Receive Date: 20220519
  Receipt Date: 20220621
  Transmission Date: 20220720
  Serious: Yes (Hospitalization, Other)
  Sender: FDA-Public Use
  Company Number: CZ-BRISTOL-MYERS SQUIBB COMPANY-2022-036264

PATIENT
  Age: 75 Year
  Sex: Female
  Weight: 65 kg

DRUGS (14)
  1. AZACITIDINE [Suspect]
     Active Substance: AZACITIDINE
     Indication: Myelodysplastic syndrome
     Dosage: 1 IN 1 DAY, 7 DAYS WITHIN FIRST 9 CALENDAR DAYS OF EACH 28 DAY CYCLE (75 MG/M2,1 IN 1 D)
     Route: 058
     Dates: start: 20211213, end: 20220313
  2. AZACITIDINE [Suspect]
     Active Substance: AZACITIDINE
     Dosage: 7 DAYS WITHIN FIRST 9 CALENDAR DAYS OF EACH 28 DAY CYCLE (75 MG/M2,1 IN 1 D)
     Route: 058
     Dates: start: 20220404, end: 20220410
  3. VENETOCLAX [Suspect]
     Active Substance: VENETOCLAX
     Indication: Myelodysplastic syndrome
     Route: 048
     Dates: start: 20211213, end: 20220417
  4. ROSUVASTATIN CALCIUM [Concomitant]
     Active Substance: ROSUVASTATIN CALCIUM
     Indication: Hyperlipidaemia
     Route: 048
  5. ROSUVASTATIN CALCIUM [Concomitant]
     Active Substance: ROSUVASTATIN CALCIUM
     Route: 048
  6. PANTOPRAZOLE SODIUM [Concomitant]
     Active Substance: PANTOPRAZOLE SODIUM
     Indication: Dyspepsia
     Dosage: 1 IN 1 D
     Route: 048
     Dates: start: 20180101, end: 20220227
  7. PANTOPRAZOLE SODIUM [Concomitant]
     Active Substance: PANTOPRAZOLE SODIUM
     Dosage: 2 IN 1 DAY, ONGOING
     Route: 048
     Dates: start: 20220228
  8. NOVETRON [Concomitant]
     Indication: Prophylaxis of nausea and vomiting
     Dosage: 1 AS REQUIRED
     Route: 048
     Dates: start: 20211213
  9. CALTRATE [Concomitant]
     Active Substance: CALCIUM CARBONATE
     Indication: Osteoporosis
     Dosage: 600/400/MG
     Route: 042
     Dates: start: 20180701
  10. vigantol [Concomitant]
     Indication: Osteoporosis
     Dosage: 8 DROP (4 DROP,2 IN 1 D)
     Route: 048
     Dates: start: 20180701
  11. POTASSIUM CHLORIDE [Concomitant]
     Active Substance: POTASSIUM CHLORIDE
     Indication: Hypokalaemia
     Route: 048
     Dates: start: 20220103, end: 20220110
  12. POTASSIUM CHLORIDE [Concomitant]
     Active Substance: POTASSIUM CHLORIDE
     Dosage: 2 IN 1 DAY
     Route: 048
     Dates: start: 20220110
  13. BISEPTOL [Concomitant]
     Active Substance: SULFAMETHOXAZOLE\TRIMETHOPRIM
     Indication: Infection prophylaxis
     Dosage: 1 IN 1 DAY
     Route: 048
  14. ZOVIRAX [Concomitant]
     Active Substance: ACYCLOVIR
     Indication: Prophylaxis
     Route: 048
     Dates: start: 20220228

REACTIONS (1)
  - Appendicitis [Recovered/Resolved with Sequelae]

NARRATIVE: CASE EVENT DATE: 20220427
